FAERS Safety Report 12428970 (Version 1)
Quarter: 2016Q2

REPORT INFORMATION
  Report Type: Spontaneous
  Country: FR (occurrence: FR)
  Receive Date: 20160602
  Receipt Date: 20160602
  Transmission Date: 20160815
  Serious: Yes (Hospitalization)
  Sender: FDA-Public Use
  Company Number: FR-B. BRAUN MEDICAL INC.-1053097

PATIENT
  Age: 79 Year
  Sex: Male

DRUGS (21)
  1. AMOXICILLIN CLAVULANIC ACID SANDOZ (AMOXICILLIN, CLAVULANIC ACID) [Suspect]
     Active Substance: AMOXICILLIN\CLAVULANIC ACID
     Route: 042
     Dates: start: 20160405, end: 20160406
  2. PIPERACILLIN, TAZOBACTAM [Suspect]
     Active Substance: PIPERACILLIN SODIUM\TAZOBACTAM SODIUM
     Route: 042
     Dates: start: 20160413, end: 20160425
  3. ONDANSETRON [Suspect]
     Active Substance: ONDANSETRON
     Route: 048
     Dates: start: 20160407, end: 20160425
  4. ENOXAPARIN SODIUM. [Suspect]
     Active Substance: ENOXAPARIN SODIUM
     Route: 058
     Dates: start: 20160401, end: 20160425
  5. FUROSEMIDE. [Suspect]
     Active Substance: FUROSEMIDE
     Route: 048
     Dates: start: 20160421, end: 20160423
  6. ATENOLOL. [Concomitant]
     Active Substance: ATENOLOL
     Route: 048
  7. LYRICA [Concomitant]
     Active Substance: PREGABALIN
  8. LEVOFLOXACIN. [Suspect]
     Active Substance: LEVOFLOXACIN
     Route: 042
     Dates: start: 20160406, end: 20160413
  9. METRONIDAZOLE. [Suspect]
     Active Substance: METRONIDAZOLE
     Indication: LUNG DISORDER
     Route: 042
     Dates: start: 20160408, end: 20160411
  10. ROVAMYCINE (SPIRAMYCIN) (SPIRAMYCIN) [Suspect]
     Active Substance: SPIRAMYCIN
     Route: 042
     Dates: start: 20160413, end: 20160425
  11. MOVICOL [Suspect]
     Active Substance: POLYETHYLENE GLYCOL 3350\POTASSIUM CHLORIDE\SODIUM BICARBONATE\SODIUM CHLORIDE
     Route: 048
     Dates: start: 20160413, end: 20160425
  12. TANGANIL 500 (ACETYLLEUCINE) [Concomitant]
     Route: 048
  13. BETASERC (BETAHISTINE) [Concomitant]
     Route: 048
  14. AMYTRIPTYLINE [Concomitant]
  15. NEFOPAM MEDISOL (NEFOPAM) [Suspect]
     Active Substance: NEFOPAM
     Route: 042
     Dates: start: 20160409, end: 20160413
  16. ESOMEPRAZOLE [Concomitant]
     Active Substance: ESOMEPRAZOLE
     Route: 048
  17. ALFUZOSIN HYDROCHLORIDE. [Concomitant]
     Active Substance: ALFUZOSIN HYDROCHLORIDE
     Route: 048
  18. OXYCODONE HYDROCHLORIDE. [Suspect]
     Active Substance: OXYCODONE HYDROCHLORIDE
     Route: 048
     Dates: start: 20160413, end: 20160425
  19. FUROSEMIDE. [Suspect]
     Active Substance: FUROSEMIDE
     Route: 048
     Dates: start: 20160405, end: 20160408
  20. PARACETAMOL [Concomitant]
     Active Substance: ACETAMINOPHEN
  21. MICARDIS [Concomitant]
     Active Substance: TELMISARTAN
     Route: 048

REACTIONS (5)
  - Stevens-Johnson syndrome [None]
  - Cholestasis [None]
  - Thrombocytopenia [None]
  - Anaemia [None]
  - Renal failure [None]
